FAERS Safety Report 11966414 (Version 1)
Quarter: 2016Q1

REPORT INFORMATION
  Report Type: Spontaneous
  Country: AT (occurrence: AT)
  Receive Date: 20160127
  Receipt Date: 20160127
  Transmission Date: 20160526
  Serious: Yes (Hospitalization, Other)
  Sender: FDA-Public Use
  Company Number: AT-TEVA-628324ISR

PATIENT
  Age: 76 Year
  Sex: Male

DRUGS (5)
  1. CLONIDIN [Suspect]
     Active Substance: CLONIDINE
     Indication: HYPERTENSION
     Dosage: .3 MILLIGRAM DAILY; 1/2-0-1/2
  2. VALSARTAN/AMLODIPIN/HCT [Suspect]
     Active Substance: AMLODIPINE\HYDROCHLOROTHIAZIDE\VALSARTAN
     Indication: HYPERTENSION
     Dosage: 1 DOSAGE FORMS DAILY; 1-0-0, 160/10/12.5 MG
  3. FUROSEMIDE. [Suspect]
     Active Substance: FUROSEMIDE
     Indication: HYPERTENSION
     Dosage: 40 MILLIGRAM DAILY; 1-0-0
  4. VALSARTAN. [Suspect]
     Active Substance: VALSARTAN
     Indication: HYPERTENSION
  5. ATENOLOL. [Suspect]
     Active Substance: ATENOLOL
     Indication: HYPERTENSION
     Dosage: 100 MILLIGRAM DAILY; 1-0-1

REACTIONS (4)
  - Blood pressure inadequately controlled [Recovered/Resolved]
  - Aortic aneurysm [Recovered/Resolved]
  - Penetrating aortic ulcer [Recovered/Resolved]
  - Renal cyst [Recovered/Resolved]
